FAERS Safety Report 4465038-7 (Version None)
Quarter: 2004Q3

REPORT INFORMATION
  Report Type: 
  Country: None (occurrence: None)
  Receive Date: 20040928
  Receipt Date: 20040928
  Transmission Date: 20050211
  Serious: Yes (Hospitalization)
  Sender: FDA-Public Use
  Company Number: None

PATIENT
  Sex: Male
  Weight: 67.3138 kg

DRUGS (4)
  1. DOCETAXEL   80MG/ML  AVENTIS [Suspect]
     Indication: PANCREATIC CARCINOMA
     Dosage: 65MG/M2  Q 21DAYS  INTRAVENOUS
     Route: 042
     Dates: start: 20040920, end: 20040920
  2. IRINOTECAN [Suspect]
     Indication: PANCREATIC CARCINOMA
     Dosage: 160MG/M2  Q21DAYS  INTRAVENOUS
     Route: 042
     Dates: start: 20040920, end: 20040920
  3. GLYBURIDE [Concomitant]
  4. CREON [Concomitant]

REACTIONS (4)
  - BODY TEMPERATURE INCREASED [None]
  - DIARRHOEA [None]
  - PLATELET COUNT DECREASED [None]
  - WHITE BLOOD CELL COUNT DECREASED [None]
